FAERS Safety Report 15476721 (Version 1)
Quarter: 2018Q4

REPORT INFORMATION
  Report Type: Spontaneous
  Country: IN (occurrence: IN)
  Receive Date: 20181009
  Receipt Date: 20181009
  Transmission Date: 20190205
  Serious: Yes (Hospitalization, Other)
  Sender: FDA-Public Use
  Company Number: IN-UNICHEM PHARMACEUTICALS (USA) INC-UCM201809-000240

PATIENT
  Age: 12 Year
  Sex: Male

DRUGS (3)
  1. DIVALPROEX SODIUM. [Suspect]
     Active Substance: DIVALPROEX SODIUM
  2. LEVETIRACETAM. [Concomitant]
     Active Substance: LEVETIRACETAM
     Dosage: MAINTENANCE DOSE OF 500 MG TWICE DAILY
  3. LEVETIRACETAM. [Concomitant]
     Active Substance: LEVETIRACETAM

REACTIONS (11)
  - Blood creatine phosphokinase increased [Recovering/Resolving]
  - Blood lactate dehydrogenase increased [Recovering/Resolving]
  - Lethargy [Recovered/Resolved]
  - Vomiting [Recovering/Resolving]
  - Condition aggravated [Recovered/Resolved]
  - Myopathy [Recovering/Resolving]
  - Headache [Recovering/Resolving]
  - Pain in extremity [Recovered/Resolved]
  - Hepatic function abnormal [Recovering/Resolving]
  - Lactic acidosis [Recovering/Resolving]
  - Muscular weakness [Recovered/Resolved]
